FAERS Safety Report 24770379 (Version 1)
Quarter: 2024Q4

REPORT INFORMATION
  Report Type: Report from Study
  Country: US (occurrence: US)
  Receive Date: 20241224
  Receipt Date: 20241224
  Transmission Date: 20250115
  Serious: Yes (Hospitalization, Other)
  Sender: ABBVIE
  Company Number: US-ABBVIE-5668370

PATIENT
  Age: 26 Year
  Sex: Male
  Weight: 72.121 kg

DRUGS (5)
  1. HUMIRA [Suspect]
     Active Substance: ADALIMUMAB
     Indication: Crohn^s disease
     Dosage: FORM STRENGTH: 40MG ,?CITRATE FREE
     Route: 058
     Dates: start: 20230818
  2. HUMIRA [Suspect]
     Active Substance: ADALIMUMAB
     Dosage: FORM STRENGTH: 40MG ,?CITRATE FREE
     Route: 058
     Dates: start: 20240213
  3. KLONOPIN [Concomitant]
     Active Substance: CLONAZEPAM
     Indication: Panic disorder
  4. PRAZOSIN [Concomitant]
     Active Substance: PRAZOSIN
     Indication: Sleep disorder
  5. TYLENOL [Concomitant]
     Active Substance: ACETAMINOPHEN
     Indication: Pain

REACTIONS (18)
  - Small intestinal resection [Recovered/Resolved]
  - Appendix cancer [Recovered/Resolved]
  - Constipation [Not Recovered/Not Resolved]
  - Dysuria [Recovered/Resolved]
  - Oral candidiasis [Recovering/Resolving]
  - Temporomandibular pain and dysfunction syndrome [Not Recovered/Not Resolved]
  - Immunodeficiency [Unknown]
  - Crohn^s disease [Unknown]
  - Surgery [Not Recovered/Not Resolved]
  - Headache [Not Recovered/Not Resolved]
  - Nerve compression [Not Recovered/Not Resolved]
  - Anxiety [Not Recovered/Not Resolved]
  - Panic attack [Not Recovered/Not Resolved]
  - Gastrointestinal disorder [Not Recovered/Not Resolved]
  - Joint range of motion decreased [Unknown]
  - Musculoskeletal disorder [Unknown]
  - Migraine [Not Recovered/Not Resolved]
  - Appendicectomy [Recovered/Resolved]

NARRATIVE: CASE EVENT DATE: 20240101
